FAERS Safety Report 5875290-9 (Version None)
Quarter: 2008Q3

REPORT INFORMATION
  Report Type: 
  Country: None (occurrence: None)
  Receive Date: 20080909
  Receipt Date: 20080905
  Transmission Date: 20090109
  Serious: Yes (Other)
  Sender: FDA-Public Use
  Company Number: CH-MERCK-0807CHE00013

PATIENT
  Age: 72 Year
  Sex: Male
  Weight: 79 kg

DRUGS (1)
  1. JANUVIA [Suspect]
     Indication: DIABETES MELLITUS
     Route: 048
     Dates: start: 20071201, end: 20080101

REACTIONS (1)
  - PANCREATIC CARCINOMA [None]
